FAERS Safety Report 4591554-3 (Version None)
Quarter: 2005Q1

REPORT INFORMATION
  Report Type: 
  Country: None (occurrence: None)
  Receive Date: 20050223
  Receipt Date: 20050223
  Transmission Date: 20050727
  Serious: Yes (Hospitalization)
  Sender: FDA-Public Use
  Company Number: None

PATIENT
  Age: 30 Year
  Sex: Male
  Weight: 120 kg

DRUGS (3)
  1. OXALIPLATIN [Suspect]
     Indication: METASTATIC MALIGNANT MELANOMA
     Dosage: 85 MG/M2 IV Q 3 WK
     Route: 042
     Dates: start: 20050204
  2. TAXOTERE [Suspect]
     Dosage: 65 MG/M2 IV Q 3 WK
     Route: 042
     Dates: start: 20050203
  3. GM-CSF 600 MCG SQ QD X 1.0 DAYS (D.3 -} 12) [Suspect]
     Route: 058
     Dates: start: 20050206

REACTIONS (5)
  - ABDOMINAL DISTENSION [None]
  - CHILLS [None]
  - CONSTIPATION [None]
  - NAUSEA [None]
  - PYREXIA [None]
